FAERS Safety Report 5755388-6 (Version None)
Quarter: 2008Q2

REPORT INFORMATION
  Report Type: 
  Country: None (occurrence: None)
  Receive Date: 20080602
  Receipt Date: 20080522
  Transmission Date: 20081010
  Serious: Yes (Hospitalization, Other)
  Sender: FDA-Public Use
  Company Number: US-ROCHE-560307

PATIENT
  Sex: Male

DRUGS (3)
  1. PEGASYS [Suspect]
     Dosage: FORM: PRE-FILLED SYRINGE
     Route: 065
     Dates: start: 20080419, end: 20080514
  2. COPEGUS [Suspect]
     Dosage: DOSAGE REPORTED AS:  1000 MG IN DIVIDED DOSES DAILY
     Route: 065
     Dates: start: 20080419, end: 20080514
  3. CLOZARIL [Suspect]
     Indication: SCHIZOPHRENIA
     Dosage: DOSAGE RECEIVED EVERY NIGHT
     Route: 065
     Dates: start: 20030101, end: 20080512

REACTIONS (5)
  - ACNE [None]
  - AGRANULOCYTOSIS [None]
  - INSOMNIA [None]
  - RASH [None]
  - SWELLING FACE [None]
